FAERS Safety Report 5295896-8 (Version None)
Quarter: 2007Q2

REPORT INFORMATION
  Report Type: 
  Country: None (occurrence: None)
  Receive Date: 20070413
  Receipt Date: 20070402
  Transmission Date: 20071010
  Serious: Yes (Hospitalization)
  Sender: FDA-Public Use
  Company Number: PHRM2007FR01183

PATIENT
  Age: 60 Year
  Sex: Male

DRUGS (11)
  1. CEFTRIAXONE [Suspect]
     Indication: HYPERTHERMIA
     Dates: start: 20061213, end: 20061221
  2. VANCOMYCIN [Suspect]
     Indication: HYPERTHERMIA
     Dates: start: 20061215, end: 20061227
  3. TIENAM [Suspect]
     Indication: HYPERTHERMIA
     Dates: start: 20061220, end: 20070105
  4. VFEND [Suspect]
     Indication: HYPERTHERMIA
     Dates: start: 20061221, end: 20070112
  5. TARGOCID [Suspect]
     Indication: HYPERTHERMIA
     Route: 042
     Dates: start: 20061227, end: 20070113
  6. ARACYTINE [Concomitant]
     Indication: CHEMOTHERAPY
     Dosage: 400 MG/DAY
     Route: 042
     Dates: start: 20061215, end: 20061221
  7. CERUBIDINE [Concomitant]
     Indication: CHEMOTHERAPY
     Dosage: 120 MG/DAY
     Route: 042
     Dates: start: 20061215, end: 20061217
  8. ZOPHREN [Concomitant]
     Indication: CHEMOTHERAPY
     Dosage: 8 MG/DAY
     Route: 042
     Dates: start: 20061215, end: 20061217
  9. NISIS [Suspect]
     Indication: HYPERTENSION
     Route: 048
     Dates: start: 20061227, end: 20070112
  10. CIPROFLOXACIN HCL [Suspect]
     Indication: HYPERTHERMIA
     Route: 042
     Dates: start: 20061213, end: 20070113
  11. CLAVENTIN [Suspect]
     Indication: HYPERTHERMIA
     Route: 042
     Dates: start: 20070106, end: 20070113

REACTIONS (7)
  - BIOPSY KIDNEY [None]
  - BLOOD CREATININE INCREASED [None]
  - BLOOD UREA INCREASED [None]
  - INFLAMMATION [None]
  - RENAL FAILURE ACUTE [None]
  - TUBULOINTERSTITIAL NEPHRITIS [None]
  - URINARY RETENTION [None]
